FAERS Safety Report 5731254-7 (Version None)
Quarter: 2008Q2

REPORT INFORMATION
  Report Type: 
  Country: None (occurrence: None)
  Receive Date: 20080505
  Receipt Date: 20080425
  Transmission Date: 20081010
  Serious: Yes (Disabling)
  Sender: FDA-Public Use
  Company Number: 062-C5013-07071004

PATIENT
  Age: 76 Year
  Sex: Male
  Weight: 64.8 kg

DRUGS (9)
  1. CC-5013 (LENALIDOMIDE) (CAPSULES) [Suspect]
     Indication: MULTIPLE MYELOMA
     Dosage: 25 MG, DAILY, ORAL; 25 MG, DAILY, ORAL
     Route: 048
     Dates: start: 20070711, end: 20070719
  2. CC-5013 (LENALIDOMIDE) (CAPSULES) [Suspect]
     Indication: MULTIPLE MYELOMA
     Dosage: 25 MG, DAILY, ORAL; 25 MG, DAILY, ORAL
     Route: 048
     Dates: start: 20070809
  3. DEXAMETHASONE TAB [Suspect]
     Indication: MULTIPLE MYELOMA
     Dosage: 40 MG, ORAL; 40 MG, ORAL
     Route: 048
     Dates: start: 20070711, end: 20070719
  4. DEXAMETHASONE TAB [Suspect]
     Indication: MULTIPLE MYELOMA
     Dosage: 40 MG, ORAL; 40 MG, ORAL
     Route: 048
     Dates: start: 20070809
  5. PANTOPRAZOLE SODIUM [Concomitant]
  6. GLIMEPIRIDE [Concomitant]
  7. INSULIN (INSULIN) [Concomitant]
  8. DICLOFENAC SODIUM [Concomitant]
  9. ENOXAPARIN SODIUM [Concomitant]

REACTIONS (4)
  - ASTHENIA [None]
  - DIZZINESS [None]
  - EXTRASYSTOLES [None]
  - PAIN [None]
